FAERS Safety Report 15839264 (Version 1)
Quarter: 2019Q1

REPORT INFORMATION
  Report Type: Spontaneous
  Country: US (occurrence: US)
  Receive Date: 20190117
  Receipt Date: 20190117
  Transmission Date: 20190417
  Serious: No
  Sender: FDA-Public Use
  Company Number: US-NEXGEN PHARMA, INC.-2061373

PATIENT
  Age: 44 Year
  Sex: Female

DRUGS (1)
  1. CHENODIOL TABLETS, 250MG [Suspect]
     Active Substance: CHENODIOL
     Indication: LIPIDS ABNORMAL
     Route: 048
     Dates: start: 20160212

REACTIONS (4)
  - Therapy cessation [None]
  - Vomiting [Unknown]
  - Migraine [Unknown]
  - Nausea [Unknown]
